FAERS Safety Report 12219832 (Version 2)
Quarter: 2016Q2

REPORT INFORMATION
  Report Type: Report from Study
  Country: CA (occurrence: CA)
  Receive Date: 20160330
  Receipt Date: 20160407
  Transmission Date: 20160815
  Serious: Yes (Other)
  Sender: FDA-Public Use
  Company Number: CA-AMGEN-CANSL2016027448

PATIENT
  Age: 16 Year
  Sex: Female
  Weight: 48.2 kg

DRUGS (3)
  1. ENBREL [Suspect]
     Active Substance: ETANERCEPT
     Indication: JUVENILE IDIOPATHIC ARTHRITIS
     Dosage: 50 MG, UNK
     Route: 058
     Dates: start: 20160227, end: 20160227
  2. METHOTREXATE [Concomitant]
     Active Substance: METHOTREXATE
  3. TYLENOL [Concomitant]
     Active Substance: ACETAMINOPHEN
     Dosage: UNK

REACTIONS (14)
  - Juvenile idiopathic arthritis [Unknown]
  - Emotional disorder [Unknown]
  - Depression suicidal [Unknown]
  - Incorrect dose administered [Unknown]
  - Arthralgia [Unknown]
  - Memory impairment [Unknown]
  - Syncope [Unknown]
  - Fatigue [Unknown]
  - Nasal congestion [Unknown]
  - Shock [Unknown]
  - Depressed mood [Unknown]
  - Productive cough [Unknown]
  - Disturbance in attention [Unknown]
  - Myalgia [Unknown]

NARRATIVE: CASE EVENT DATE: 2016
